FAERS Safety Report 9468722 (Version 1)
Quarter: 2013Q3

REPORT INFORMATION
  Report Type: Spontaneous
  Country: AU (occurrence: AU)
  Receive Date: 20130821
  Receipt Date: 20130821
  Transmission Date: 20140515
  Serious: Yes (Life-Threatening)
  Sender: FDA-Public Use
  Company Number: AU-BAYER-2013-100125

PATIENT
  Age: 29 Year
  Sex: Female

DRUGS (1)
  1. YAZ [Suspect]

REACTIONS (4)
  - Pulmonary thrombosis [None]
  - Thrombosis [None]
  - Dry gangrene [None]
  - General physical health deterioration [None]
